FAERS Safety Report 15916977 (Version 2)
Quarter: 2019Q1

REPORT INFORMATION
  Report Type: Spontaneous
  Country: US (occurrence: US)
  Receive Date: 20190205
  Receipt Date: 20190205
  Transmission Date: 20190417
  Serious: Yes (Death, Hospitalization)
  Sender: FDA-Public Use
  Company Number: US-CELGENEUS-USA-20190200423

PATIENT
  Age: 74 Year
  Sex: Female

DRUGS (1)
  1. REVLIMID [Suspect]
     Active Substance: LENALIDOMIDE
     Indication: PLASMA CELL MYELOMA
     Dosage: 10 MILLIGRAM
     Route: 048
     Dates: start: 20180808, end: 20181231

REACTIONS (6)
  - Pneumonia aspiration [Unknown]
  - Dysphagia [Unknown]
  - Colitis ischaemic [Unknown]
  - Acute respiratory failure [Unknown]
  - Death [Fatal]
  - Dysphonia [Unknown]

NARRATIVE: CASE EVENT DATE: 20181228
